FAERS Safety Report 9462812 (Version 2)
Quarter: 2013Q3

REPORT INFORMATION
  Report Type: Spontaneous
  Country: GB (occurrence: None)
  Receive Date: 20130814
  Receipt Date: 20130823
  Transmission Date: 20140515
  Serious: Yes (Disabling, Other)
  Sender: FDA-Public Use
  Company Number: AUR-APL-2013-06637

PATIENT
  Age: 56 Year
  Sex: Male
  Weight: 76 kg

DRUGS (1)
  1. SIMVASTATIN [Suspect]
     Indication: BLOOD CHOLESTEROL INCREASED
     Dosage: 40 MG  (40 MG, 1 IN 1 D ), ORAL
     Route: 048
     Dates: start: 20130226, end: 20130317

REACTIONS (11)
  - Muscle spasms [None]
  - Fatigue [None]
  - Erectile dysfunction [None]
  - Hypoaesthesia [None]
  - Arthralgia [None]
  - Arthralgia [None]
  - Back pain [None]
  - Myalgia [None]
  - Pain [None]
  - Mobility decreased [None]
  - Tendon pain [None]
